FAERS Safety Report 4479701-5 (Version None)
Quarter: 2004Q4

REPORT INFORMATION
  Report Type: 
  Country: None (occurrence: None)
  Receive Date: 20041015
  Receipt Date: 20041004
  Transmission Date: 20050328
  Serious: Yes (Hospitalization)
  Sender: FDA-Public Use
  Company Number: 2004059392

PATIENT
  Age: 21 Year
  Sex: Female
  Weight: 93 kg

DRUGS (8)
  1. ZITHROMAX [Suspect]
     Indication: BRONCHITIS ACUTE
     Dosage: 500 MG (500 MG, 1 IN 1 D), ORAL
     Route: 048
     Dates: start: 20040819, end: 20040821
  2. DEXAMETHASONE [Concomitant]
  3. AMINOPHYLLIN [Concomitant]
  4. BUDESONIDE (BUDESONIDE) [Concomitant]
  5. THEOPHYLLINE [Concomitant]
  6. BROMHEXINE HYDROCHLORIDE (BROMHEXINE HYDROCHLORIDE) [Concomitant]
  7. TRANEXAMIC ACID (TRANEXAMIC ACID) [Concomitant]
  8. DIMEMORFAN PHOSPHATE (DIMEMORFAN PHOSPHATE) [Concomitant]

REACTIONS (8)
  - ASTHMA [None]
  - CONDITION AGGRAVATED [None]
  - DRUG HYPERSENSITIVITY [None]
  - LYMPHOCYTE PERCENTAGE DECREASED [None]
  - NEUTROPHIL PERCENTAGE INCREASED [None]
  - PHARYNGEAL OEDEMA [None]
  - TOXIC SKIN ERUPTION [None]
  - WHITE BLOOD CELL COUNT INCREASED [None]
